FAERS Safety Report 22691944 (Version 2)
Quarter: 2023Q4

REPORT INFORMATION
  Report Type: Spontaneous
  Country: NL (occurrence: NL)
  Receive Date: 20230711
  Receipt Date: 20231109
  Transmission Date: 20240110
  Serious: Yes (Hospitalization)
  Sender: FDA-Public Use
  Company Number: NL-Accord-363306

PATIENT
  Age: 81 Year
  Sex: Male
  Weight: 82 kg

DRUGS (19)
  1. OXALIPLATIN [Suspect]
     Active Substance: OXALIPLATIN
     Indication: Diffuse large B-cell lymphoma stage III
     Dosage: 1Q2W?FORM OF ADMIN. CONCENTRATE FOR SOLUTION FOR INFUSION
     Dates: start: 20230523
  2. GEMCITABINE [Suspect]
     Active Substance: GEMCITABINE
     Indication: Diffuse large B-cell lymphoma stage III
     Dosage: 1Q2W?FORM OF ADMIN. CONCENTRATE FOR SOLUTION FOR INFUSION
     Dates: start: 20230523
  3. EPCORITAMAB [Suspect]
     Active Substance: EPCORITAMAB
     Indication: Diffuse large B-cell lymphoma stage III
     Dosage: FULL DOSE: 48 MILLIGRAM WEEKLY?FORM OF ADMIN. CONCENTRATE FOR SOLUTION FOR INJECTION
     Route: 058
     Dates: start: 20230605
  4. EPCORITAMAB [Suspect]
     Active Substance: EPCORITAMAB
     Indication: Diffuse large B-cell lymphoma stage III
     Dosage: PRIMING DOSE: 0.16 MILLIGRAM, SINGLE?CONCENTRATE FOR SOLUTION FOR INJECTION
     Route: 058
     Dates: start: 20230523, end: 20230523
  5. EPCORITAMAB [Suspect]
     Active Substance: EPCORITAMAB
     Indication: Diffuse large B-cell lymphoma stage III
     Dosage: INTERMEDIATE DOSE: 0.8 MILLIGRAM, SINGLE?CONCENTRATE FOR SOLUTION FOR INJECTION
     Route: 058
     Dates: start: 20230530, end: 20230530
  6. FLUOROURACIL [Concomitant]
     Active Substance: FLUOROURACIL
     Indication: Product used for unknown indication
     Dosage: FORM OF ADMIN. CREAM
     Dates: start: 20230606, end: 20230724
  7. ACETAMINOPHEN [Concomitant]
     Active Substance: ACETAMINOPHEN
     Indication: Premedication
     Dates: start: 20230605, end: 20230605
  8. ACETAMINOPHEN [Concomitant]
     Active Substance: ACETAMINOPHEN
     Indication: Premedication
     Dosage: 1000 MG
     Route: 048
     Dates: start: 20230523, end: 20230523
  9. ACETAMINOPHEN [Concomitant]
     Active Substance: ACETAMINOPHEN
     Indication: Premedication
     Dosage: 1000 MG
     Route: 048
     Dates: start: 20230530, end: 20230530
  10. EMEND [Concomitant]
     Active Substance: APREPITANT
     Indication: Product used for unknown indication
     Dates: start: 20230605, end: 20230605
  11. METOCLOPRAMIDE [Concomitant]
     Active Substance: METOCLOPRAMIDE
     Indication: Product used for unknown indication
     Dates: start: 20230606, end: 20230607
  12. PREDNISOLONE [Concomitant]
     Active Substance: PREDNISOLONE
     Indication: Premedication
     Dosage: 100 MG
     Route: 048
     Dates: start: 20230530, end: 20230602
  13. PREDNISOLONE [Concomitant]
     Active Substance: PREDNISOLONE
     Indication: Premedication
     Dosage: 100 MG
     Route: 048
     Dates: start: 20230605, end: 20230608
  14. PREDNISOLONE [Concomitant]
     Active Substance: PREDNISOLONE
     Indication: Premedication
     Dosage: 100 MG
     Route: 048
     Dates: start: 20230523, end: 20230526
  15. APREPITANT [Concomitant]
     Active Substance: APREPITANT
     Indication: Product used for unknown indication
     Dates: start: 20230523, end: 20230605
  16. AMOXICILLIN W/CLARITHROMYCIN/PANTOP [Concomitant]
     Indication: Product used for unknown indication
     Dates: start: 20230428, end: 20230512
  17. CLEMASTINE FUMARATE [Concomitant]
     Active Substance: CLEMASTINE FUMARATE
     Indication: Premedication
     Dates: start: 20230605, end: 20230605
  18. CLEMASTINE FUMARATE [Concomitant]
     Active Substance: CLEMASTINE FUMARATE
     Indication: Premedication
     Dosage: 2 MG
     Dates: start: 20230523, end: 20230523
  19. CLEMASTINE FUMARATE [Concomitant]
     Active Substance: CLEMASTINE FUMARATE
     Indication: Premedication
     Dosage: 2 MG
     Dates: start: 20230530, end: 20230530

REACTIONS (1)
  - Cytokine release syndrome [Recovered/Resolved]

NARRATIVE: CASE EVENT DATE: 20230606
